FAERS Safety Report 8607703 (Version 2)
Quarter: 2012Q4

REPORT INFORMATION
  Report Type: 
  Country: US (occurrence: US)
  Receive Date: 20120611
  Receipt Date: 20121217
  Transmission Date: 20130627
  Serious: Yes (Other)
  Sender: FDA-Public Use
  Company Number: US-BAYER-2012-056817

PATIENT
  Age: 30 Year
  Sex: Female
  Weight: 88.44 kg

DRUGS (15)
  1. OCELLA [Suspect]
     Indication: MENSTRUAL CYCLE MANAGEMENT
     Dosage: UNK
     Dates: start: 20031009, end: 20040721
  2. OCELLA [Suspect]
     Indication: MENSTRUAL CYCLE MANAGEMENT
     Dosage: UNK
     Dates: start: 20081115
  3. YASMIN [Suspect]
     Indication: MENSTRUAL CYCLE MANAGEMENT
     Dosage: UNK
     Dates: start: 20031009, end: 20040721
  4. YASMIN [Suspect]
     Indication: MENSTRUAL CYCLE MANAGEMENT
     Dosage: UNK
     Dates: start: 20081115
  5. PROVENTIL [Concomitant]
     Dosage: UNK
     Dates: start: 2008
  6. SINGULAIR [Concomitant]
     Dosage: UNK
     Dates: start: 2009
  7. HYDROCHLOROTHIAZIDE [Concomitant]
     Dosage: UNK
     Dates: start: 2009
  8. AZITHROMYCIN [Concomitant]
     Dosage: UNK
     Dates: start: 2011
  9. VERAPAMIL [Concomitant]
     Dosage: UNK
     Dates: start: 2011
  10. SUMATRIPTAN [Concomitant]
     Dosage: UNK
     Dates: start: 2011
  11. RITALIN [Concomitant]
     Dosage: 10 mg, UNK
     Dates: start: 2004, end: 2011
  12. NEXIUM [Concomitant]
     Indication: GERD
     Dosage: UNK
     Dates: start: 2009
  13. EFFEXOR [Concomitant]
     Indication: DEPRESSION
     Dosage: UNK
     Dates: start: 2009
  14. ADDERALL [Concomitant]
     Indication: ADD
     Dosage: UNK
     Dates: start: 2011
  15. ZYRTEC [Concomitant]
     Indication: MULTIPLE ALLERGIES
     Dosage: UNK
     Dates: start: 2000

REACTIONS (7)
  - Hepatobiliary scan abnormal [None]
  - Gallbladder disorder [None]
  - Injury [None]
  - Emotional distress [None]
  - Off label use [None]
  - Pain [None]
  - Anhedonia [None]
